FAERS Safety Report 12883829 (Version 1)
Quarter: 2016Q4

REPORT INFORMATION
  Report Type: Spontaneous
  Country: FR (occurrence: FR)
  Receive Date: 20161026
  Receipt Date: 20161026
  Transmission Date: 20170207
  Serious: Yes (Death)
  Sender: FDA-Public Use
  Company Number: FR-ACCORD-045007

PATIENT
  Age: 50 Year
  Sex: Male

DRUGS (6)
  1. CISPLATIN ACCORD [Suspect]
     Active Substance: CISPLATIN
     Indication: BRONCHIAL CARCINOMA
     Dosage: 69 MG ONE SINGLE INTAKE AND 79 MG ONE SINGLE INTAKE
     Route: 042
     Dates: start: 20160908, end: 20160908
  2. ZOPHREN [Concomitant]
     Active Substance: ONDANSETRON
     Indication: PREMEDICATION
     Dosage: STRENGTH: 8 MG
  3. COOLMETEC [Concomitant]
     Active Substance: HYDROCHLOROTHIAZIDE\OLMESARTAN MEDOXOMIL
  4. ALIMTA [Suspect]
     Active Substance: PEMETREXED DISODIUM
     Indication: BRONCHIAL CARCINOMA
     Dosage: 500 MG FLASK
     Route: 042
     Dates: start: 20160908, end: 20160909
  5. DOTAREM [Suspect]
     Active Substance: GADOTERATE MEGLUMINE
     Indication: PRODUCT USED FOR UNKNOWN INDICATION
     Route: 042
     Dates: start: 20160915, end: 20160915
  6. SOLU-MEDROL [Concomitant]
     Active Substance: METHYLPREDNISOLONE SODIUM SUCCINATE
     Indication: PREMEDICATION
     Dosage: 40 + 20 MG

REACTIONS (6)
  - Vomiting [Fatal]
  - Nausea [Fatal]
  - Pancytopenia [Fatal]
  - Septic shock [Fatal]
  - Acute kidney injury [Fatal]
  - Flatulence [Fatal]

NARRATIVE: CASE EVENT DATE: 20160916
